FAERS Safety Report 20378889 (Version 1)
Quarter: 2022Q1

REPORT INFORMATION
  Report Type: Spontaneous
  Country: FR (occurrence: FR)
  Receive Date: 20220126
  Receipt Date: 20220126
  Transmission Date: 20220423
  Serious: Yes (Hospitalization, Other)
  Sender: FDA-Public Use
  Company Number: FR-PFM-2022-00405

PATIENT
  Age: 60 Year
  Sex: Male

DRUGS (2)
  1. BRAFTOVI [Suspect]
     Active Substance: ENCORAFENIB
     Indication: Malignant melanoma
     Dosage: STANDARD DOSES OF BRAFTOVI
     Route: 065
  2. MEKTOVI [Suspect]
     Active Substance: BINIMETINIB
     Indication: Malignant melanoma
     Dosage: STANDARD DOSES OF MEKTOVI
     Route: 065

REACTIONS (3)
  - Infarction [Unknown]
  - Cardiac ventricular thrombosis [Unknown]
  - Left ventricular dysfunction [Unknown]
